FAERS Safety Report 4970316-9 (Version None)
Quarter: 2006Q2

REPORT INFORMATION
  Report Type: 
  Country: None (occurrence: None)
  Receive Date: 20060412
  Receipt Date: 20060306
  Transmission Date: 20061013
  Serious: Yes (Other)
  Sender: FDA-Public Use
  Company Number: 2006AP01067

PATIENT
  Age: 23457 Day
  Sex: Female

DRUGS (14)
  1. SEROQUEL [Suspect]
     Indication: SCHIZOPHRENIA
     Route: 048
     Dates: start: 20021122, end: 20030417
  2. SEROQUEL [Suspect]
     Route: 048
     Dates: start: 20030418, end: 20030424
  3. SEROQUEL [Suspect]
     Route: 048
     Dates: start: 20030425, end: 20030522
  4. SEROQUEL [Suspect]
     Route: 048
     Dates: start: 20030523, end: 20030717
  5. SEROQUEL [Suspect]
     Route: 048
     Dates: start: 20030718, end: 20040819
  6. SEROQUEL [Suspect]
     Route: 048
     Dates: start: 20040820, end: 20040930
  7. SEROQUEL [Suspect]
     Route: 048
     Dates: start: 20041001, end: 20060207
  8. SEROQUEL [Suspect]
     Route: 048
     Dates: start: 20060208
  9. RISPERDAL [Suspect]
     Indication: SCHIZOPHRENIA
     Route: 048
     Dates: start: 20050819, end: 20060207
  10. RISPERDAL [Suspect]
     Route: 048
     Dates: start: 20060208
  11. CONTMIN [Suspect]
     Indication: SCHIZOPHRENIA
     Route: 048
  12. NERGART/FLURAZEPAM HYDROCHLORIDE [Concomitant]
     Indication: SCHIZOPHRENIA
     Route: 048
     Dates: start: 20040924
  13. AKIRIDEN [Concomitant]
     Indication: PARKINSONISM
     Route: 048
     Dates: start: 20021227
  14. SENNARIDE [Concomitant]
     Indication: CONSTIPATION
     Route: 048
     Dates: start: 20050311

REACTIONS (5)
  - ASPARTATE AMINOTRANSFERASE INCREASED [None]
  - BLOOD CREATINE PHOSPHOKINASE INCREASED [None]
  - BLOOD LACTATE DEHYDROGENASE INCREASED [None]
  - MUSCULOSKELETAL STIFFNESS [None]
  - NEUROLEPTIC MALIGNANT SYNDROME [None]
